FAERS Safety Report 6287453-1 (Version None)
Quarter: 2009Q3

REPORT INFORMATION
  Report Type: 
  Country: None (occurrence: None)
  Receive Date: 20090727
  Receipt Date: 20090721
  Transmission Date: 20100115
  Serious: Yes (Hospitalization)
  Sender: FDA-Public Use
  Company Number: GXKR2009DE08345

PATIENT
  Age: 74 Year
  Sex: Male
  Weight: 73 kg

DRUGS (15)
  1. BISOPROLOL FUMARATE [Suspect]
     Indication: HYPERTENSION
     Dosage: 5 MG, BID, ORAL
     Route: 048
     Dates: start: 20040101
  2. ENALAPRIL MALEATE [Suspect]
     Indication: HYPERTENSION
     Dosage: 10 MG, QD, ORAL
     Route: 048
     Dates: start: 20040101
  3. NOVONORM (REPAGLINIDE) [Suspect]
     Indication: TYPE 2 DIABETES MELLITUS
     Dosage: 1 MG, TID (1-1-1-0), ORAL
     Route: 048
     Dates: start: 20080818, end: 20080831
  4. SALBUTAMOL (SALBUTAMOL) [Concomitant]
  5. PREDNISOLONE [Concomitant]
  6. PRAVASTATIN [Concomitant]
  7. PHOS-EX (CALCIUM ACETATE) [Concomitant]
  8. PALLADONE [Concomitant]
  9. OMEP (OMEPRAZOLE) [Concomitant]
  10. NEURONTIN [Concomitant]
  11. KATADOLON (FLUPIRTINE MALEATE) [Concomitant]
  12. CLOPIDOGREL [Concomitant]
  13. FOSTER (BECLOMETASONE, FORMOTEROL) [Concomitant]
  14. CALCIUM (CALCIUM) [Concomitant]
  15. BICANORM /01764101/ (SODIUM CARBONATE ANHYDROUS) [Concomitant]

REACTIONS (2)
  - DRUG INTERACTION [None]
  - HYPOGLYCAEMIA [None]
